FAERS Safety Report 10034259 (Version 1)
Quarter: 2014Q1

REPORT INFORMATION
  Report Type: Spontaneous
  Country: US (occurrence: US)
  Receive Date: 20140325
  Receipt Date: 20140325
  Transmission Date: 20141002
  Serious: Yes (Other)
  Sender: FDA-Public Use
  Company Number: US-SA-2014SA036371

PATIENT
  Age: 42 Year
  Sex: Female
  Weight: 70.89 kg

DRUGS (18)
  1. FABRAZYME [Suspect]
     Indication: FABRY^S DISEASE
     Route: 042
     Dates: start: 20130128
  2. MACROBID [Concomitant]
  3. ACETAMINOPHEN [Concomitant]
  4. DIPHENHYDRAMINE [Concomitant]
  5. NORMAL SALINE [Concomitant]
  6. SODIUM CHLORIDE [Concomitant]
  7. WATER FOR INJECTION [Concomitant]
  8. EPIPEN [Concomitant]
  9. SOLU-MEDROL [Concomitant]
  10. FIORICET [Concomitant]
  11. OXYCONTIN [Concomitant]
  12. PROZAC [Concomitant]
  13. SINGULAIR [Concomitant]
  14. ADDERALL [Concomitant]
  15. MOBIC [Concomitant]
  16. TOPAMAX [Concomitant]
  17. LORTAB [Concomitant]
  18. DEXILANT [Concomitant]

REACTIONS (1)
  - Cardiac disorder [Unknown]
